FAERS Safety Report 9305944 (Version 1)
Quarter: 2013Q2

REPORT INFORMATION
  Report Type: Spontaneous
  Country: IT (occurrence: IT)
  Receive Date: 20130523
  Receipt Date: 20130523
  Transmission Date: 20140414
  Serious: Yes (Other)
  Sender: FDA-Public Use
  Company Number: IT-PFIZER INC-2013156824

PATIENT
  Age: 47 Year
  Sex: Female

DRUGS (5)
  1. XANAX [Suspect]
     Indication: DEPRESSION
     Dosage: 7.5 MG, TOTAL
     Route: 048
     Dates: start: 20130425, end: 20130425
  2. STILNOX [Suspect]
     Indication: DEPRESSION
     Dosage: 40 MG, TOTAL
     Route: 048
     Dates: start: 20130425, end: 20130425
  3. RISPERIDONE [Concomitant]
     Indication: DEPRESSION
     Dosage: 2 MG, UNK
     Route: 048
     Dates: start: 20130401, end: 20130425
  4. CYMBALTA [Concomitant]
     Indication: DEPRESSION
     Dosage: 60 MG, UNK
     Route: 048
     Dates: start: 20130408, end: 20130425
  5. CYMBALTA [Concomitant]
     Dosage: 30 MG, UNK
     Route: 048
     Dates: start: 20130401, end: 20130407

REACTIONS (2)
  - Drug abuse [Recovering/Resolving]
  - Sopor [Recovering/Resolving]
